FAERS Safety Report 15963735 (Version 2)
Quarter: 2019Q1

REPORT INFORMATION
  Report Type: Spontaneous
  Country: GR (occurrence: GR)
  Receive Date: 20190214
  Receipt Date: 20190227
  Transmission Date: 20190417
  Serious: Yes (Other)
  Sender: FDA-Public Use
  Company Number: GR-MYLANLABS-2019M1013353

PATIENT
  Age: 83 Year
  Sex: Male

DRUGS (3)
  1. VASCACE PLUS [Concomitant]
     Indication: HYPERTENSION
     Dosage: UNK
  2. RYTHMONORM 150MG FILM COATED TABLETS [Suspect]
     Active Substance: PROPAFENONE HYDROCHLORIDE
     Indication: ATRIAL FIBRILLATION
     Dosage: 150 MILLIGRAM, TID
  3. ZANIDIP [Concomitant]
     Active Substance: LERCANIDIPINE HYDROCHLORIDE
     Indication: HYPERTENSION
     Dosage: 10 MILLIGRAM

REACTIONS (1)
  - Arrhythmia [Recovered/Resolved]
